FAERS Safety Report 24682253 (Version 1)
Quarter: 2024Q4

REPORT INFORMATION
  Report Type: Report from Study
  Country: JP (occurrence: JP)
  Receive Date: 20241130
  Receipt Date: 20241130
  Transmission Date: 20250114
  Serious: Yes (Hospitalization)
  Sender: ABBVIE
  Company Number: JP-ABBVIE-5658743

PATIENT
  Age: 81 Year
  Sex: Male

DRUGS (1)
  1. FOSCARBIDOPA\FOSLEVODOPA [Suspect]
     Active Substance: FOSCARBIDOPA\FOSLEVODOPA
     Indication: Parkinson^s disease
     Route: 058
     Dates: start: 20240206

REACTIONS (16)
  - Melaena [Recovered/Resolved]
  - Infusion site pain [Unknown]
  - Insomnia [Unknown]
  - Diverticulum intestinal haemorrhagic [Recovered/Resolved]
  - Sense of oppression [Unknown]
  - Infusion site scar [Unknown]
  - Psychiatric symptom [Unknown]
  - Hallucination, auditory [Unknown]
  - Hallucination [Unknown]
  - Somnolence [Not Recovered/Not Resolved]
  - Product communication issue [Unknown]
  - Infusion site mass [Unknown]
  - Therapeutic product effect incomplete [Unknown]
  - Adverse event [Unknown]
  - Infusion site mass [Recovered/Resolved]
  - Infusion site reaction [Unknown]

NARRATIVE: CASE EVENT DATE: 20240101
